FAERS Safety Report 13035841 (Version 4)
Quarter: 2016Q4

REPORT INFORMATION
  Report Type: Spontaneous
  Country: US (occurrence: US)
  Receive Date: 20161216
  Receipt Date: 20161230
  Transmission Date: 20170207
  Serious: No
  Sender: FDA-Public Use
  Company Number: US-PFIZER INC-2016582227

PATIENT
  Age: 47 Year
  Sex: Male
  Weight: 98 kg

DRUGS (12)
  1. CARAFATE [Concomitant]
     Active Substance: SUCRALFATE
     Indication: GASTRITIS EROSIVE
     Dosage: 1 G, 4X/DAY
     Route: 048
     Dates: start: 20160919
  2. ACETYLSALICYLIC ACID, CAFFEINE, CODEINE PHOSPHATE [Concomitant]
     Indication: HEADACHE
     Dosage: UNK, AS NEEDED
  3. CLONIDINE. [Concomitant]
     Active Substance: CLONIDINE
     Indication: BLOOD PRESSURE ABNORMAL
  4. VITAMIN B12 [Concomitant]
     Active Substance: CYANOCOBALAMIN
     Dosage: 500 UG, 1X/DAY
  5. NORCO [Concomitant]
     Active Substance: ACETAMINOPHEN\HYDROCODONE BITARTRATE
     Indication: CARPAL TUNNEL SYNDROME
     Dosage: AS NEEDED
  6. LISINOPRIL. [Concomitant]
     Active Substance: LISINOPRIL
     Indication: HYPERTENSION
     Dosage: 10 MG, 1X/DAY
  7. CLONIDINE. [Concomitant]
     Active Substance: CLONIDINE
     Indication: BLOOD PRESSURE SYSTOLIC
     Dosage: 0.1 MG, 3X/DAY
  8. ALEVE [Concomitant]
     Active Substance: NAPROXEN SODIUM
     Indication: CARPAL TUNNEL SYNDROME
     Dosage: UNK, DAILY
  9. ALEVE [Concomitant]
     Active Substance: NAPROXEN SODIUM
     Dosage: 220 MG, 2X/DAY
     Route: 048
  10. NORCO [Concomitant]
     Active Substance: ACETAMINOPHEN\HYDROCODONE BITARTRATE
     Indication: HEAD INJURY
  11. IBUPROFEN. [Concomitant]
     Active Substance: IBUPROFEN
     Indication: CARPAL TUNNEL SYNDROME
     Dosage: 200 MG, 2 EVERY 4-6 HOURS
  12. PANTOPRAZOLE [Suspect]
     Active Substance: PANTOPRAZOLE SODIUM
     Dosage: 40 MG, 2X/DAY
     Route: 048
     Dates: start: 20160919

REACTIONS (1)
  - Drug screen false positive [Unknown]

NARRATIVE: CASE EVENT DATE: 20161207
